FAERS Safety Report 5454864-3 (Version None)
Quarter: 2007Q3

REPORT INFORMATION
  Report Type: 
  Country: None (occurrence: None)
  Receive Date: 20070917
  Receipt Date: 20061012
  Transmission Date: 20080115
  Serious: No
  Sender: FDA-Public Use
  Company Number: US-ASTRAZENECA-2006UW19811

PATIENT
  Age: 27 Year
  Sex: Female
  Weight: 56.7 kg

DRUGS (5)
  1. SEROQUEL [Suspect]
     Indication: BIPOLAR DISORDER
     Route: 048
     Dates: start: 20050101
  2. SEROQUEL [Suspect]
  3. SONATA [Concomitant]
  4. LEXAPRO [Concomitant]
  5. ANTABUSE [Concomitant]

REACTIONS (1)
  - SOMNAMBULISM [None]
